FAERS Safety Report 9058620 (Version 2)
Quarter: 2013Q1

REPORT INFORMATION
  Report Type: Report from Study
  Country: US (occurrence: US)
  Receive Date: 20130211
  Receipt Date: 20130305
  Transmission Date: 20140127
  Serious: Yes (Life-Threatening, Hospitalization, Other)
  Sender: FDA-Public Use
  Company Number: US-GENZYME-CLOF-1002498

PATIENT
  Age: 64 None
  Sex: Female
  Weight: 93.26 kg

DRUGS (28)
  1. CLOLAR [Suspect]
     Indication: BONE MARROW CONDITIONING REGIMEN
     Dosage: 30 MG/M2, QD (DAY 6 THROUGH DAY 2)
     Route: 042
     Dates: start: 20120331, end: 20120404
  2. THYMOGLOBULIN [Suspect]
     Indication: BONE MARROW CONDITIONING REGIMEN
     Dosage: 1.5 MG/KG, QD
     Route: 042
     Dates: start: 20120326, end: 20120326
  3. THYMOGLOBULIN [Suspect]
     Dosage: 1.5 MG/KG, QD
     Route: 042
     Dates: start: 20120327, end: 20120327
  4. THYMOGLOBULIN [Suspect]
     Dosage: 1.5 MG/KG, QD
     Route: 042
     Dates: start: 20120328, end: 20120328
  5. THYMOGLOBULIN [Suspect]
     Dosage: 1.5 MG/KG, QD
     Route: 042
     Dates: start: 20120329, end: 20120329
  6. THYMOGLOBULIN [Suspect]
     Dosage: 1.5 MG/KG, QD
     Route: 042
     Dates: start: 20120330, end: 20120330
  7. TOTAL LYMPHOID IRRADIATION [Suspect]
     Indication: BONE MARROW CONDITIONING REGIMEN
     Dosage: UNK
     Route: 065
  8. ACYCLOVIR [Concomitant]
     Indication: PRODUCT USED FOR UNKNOWN INDICATION
     Dosage: 400 MG, BID
     Route: 048
  9. MEPRON [Concomitant]
     Indication: PRODUCT USED FOR UNKNOWN INDICATION
     Dosage: 750 MG/5 ML, BID (ORAL SUSPENSION)
     Route: 048
  10. SENSIPAR [Concomitant]
     Indication: PRODUCT USED FOR UNKNOWN INDICATION
     Dosage: 15 MG, QD
     Route: 048
  11. CLOBETASOL [Concomitant]
     Indication: PRODUCT USED FOR UNKNOWN INDICATION
     Dosage: 0.05% APPLY TO SKIN, BID
     Route: 061
  12. CLONAZEPAM [Concomitant]
     Indication: PRODUCT USED FOR UNKNOWN INDICATION
     Dosage: 0.5 MG, BID
     Route: 048
  13. FLUCONAZOLE [Concomitant]
     Indication: PRODUCT USED FOR UNKNOWN INDICATION
     Dosage: 200 MG, QD
     Route: 048
  14. FLUDROCORTISONE [Concomitant]
     Indication: PRODUCT USED FOR UNKNOWN INDICATION
     Dosage: 0.1 MG, QD
     Route: 048
  15. LACOSAMIDE [Concomitant]
     Indication: PRODUCT USED FOR UNKNOWN INDICATION
     Dosage: 150 MG, BID
     Route: 048
  16. LACTULOSE [Concomitant]
     Indication: CONSTIPATION
     Dosage: 20 G/ 30 ML, ONCE A DAY, PRN
     Route: 048
  17. KEPPRA [Concomitant]
     Indication: PROPHYLAXIS
     Dosage: 750 MG, BID
     Route: 048
  18. LIDODERM [Concomitant]
     Indication: PRODUCT USED FOR UNKNOWN INDICATION
     Dosage: 700 MG/PATCH, QD
     Route: 061
  19. OMEPRAZOLE [Concomitant]
     Indication: PRODUCT USED FOR UNKNOWN INDICATION
     Dosage: 20 MG, QD
     Route: 048
  20. ZOFRAN [Concomitant]
     Indication: NAUSEA
     Dosage: 4 MG, EVERY EIGHT HOURS, PRN
     Route: 048
  21. TAMIFLU [Concomitant]
     Indication: PRODUCT USED FOR UNKNOWN INDICATION
     Dosage: 75 MG, QD
     Route: 048
  22. PREDNISONE [Concomitant]
     Indication: PRODUCT USED FOR UNKNOWN INDICATION
     Dosage: 10 MG, QD
     Route: 048
  23. ACETAMINOPHEN [Concomitant]
     Indication: PAIN
     Dosage: 650 MG, EVERY SIX HOURS, PRN
     Route: 048
  24. MAALOX MAX ANTACID [Concomitant]
     Indication: PRODUCT USED FOR UNKNOWN INDICATION
     Dosage: UNK
     Route: 065
  25. VITAMIN D3 [Concomitant]
     Indication: PRODUCT USED FOR UNKNOWN INDICATION
     Dosage: 2000 U, QD
     Route: 048
  26. DOCUSATE SODIUM [Concomitant]
     Indication: PRODUCT USED FOR UNKNOWN INDICATION
     Dosage: 100 MG, BID
     Route: 048
  27. SENNA [Concomitant]
     Indication: CONSTIPATION
     Dosage: 8.6 MG, TWICE PER DAY, PRN
     Route: 048
  28. WHITE PETROLEUM [Concomitant]
     Indication: PRODUCT USED FOR UNKNOWN INDICATION
     Dosage: 41 %, THREE TIMES PER DAY, PRN
     Route: 061

REACTIONS (2)
  - Haemorrhagic stroke [Recovered/Resolved with Sequelae]
  - Hemiplegia [Not Recovered/Not Resolved]
